FAERS Safety Report 23061974 (Version 1)
Quarter: 2023Q4

REPORT INFORMATION
  Report Type: Spontaneous
  Country: US (occurrence: US)
  Receive Date: 20231013
  Receipt Date: 20231013
  Transmission Date: 20240109
  Serious: No
  Sender: FDA-Public Use
  Company Number: US-APOTEX-2023AP010360

PATIENT
  Age: 69 Year
  Sex: Female

DRUGS (2)
  1. FLUTICASONE PROPIONATE [Suspect]
     Active Substance: FLUTICASONE PROPIONATE
     Indication: Asthma
     Dosage: 2 DOSAGE FORM, BID(1 SPRAY IN EACH NOSTRIL IN MORNING AND AT NIGHT)
     Route: 045
     Dates: start: 20230709, end: 20230710
  2. PULMICORT TURBUHALER [Concomitant]
     Active Substance: BUDESONIDE
     Indication: Asthma
     Dosage: 1 DOSAGE FORM, BID (1 PUFF IN MORNING AND AT NIGHT IMMEDIATELY AFTER FLUTICASONE)
     Route: 065

REACTIONS (2)
  - Product odour abnormal [Unknown]
  - Throat irritation [Recovered/Resolved]

NARRATIVE: CASE EVENT DATE: 20230709
